FAERS Safety Report 10844689 (Version 1)
Quarter: 2015Q1

REPORT INFORMATION
  Report Type: Report from Study
  Country: US (occurrence: US)
  Receive Date: 20150220
  Receipt Date: 20150220
  Transmission Date: 20150721
  Serious: No
  Sender: FDA-Public Use
  Company Number: US-ABBVIE-14P-163-1294742-00

PATIENT
  Age: 30 Year
  Sex: Female

DRUGS (2)
  1. TYLENOL [Suspect]
     Active Substance: ACETAMINOPHEN
     Indication: ANKYLOSING SPONDYLITIS
     Route: 065
     Dates: start: 20141005
  2. HUMIRA [Suspect]
     Active Substance: ADALIMUMAB
     Indication: ANKYLOSING SPONDYLITIS
     Route: 065
     Dates: start: 20140922

REACTIONS (11)
  - Inappropriate schedule of drug administration [Recovered/Resolved]
  - Injection site warmth [Recovered/Resolved]
  - Ankylosing spondylitis [Not Recovered/Not Resolved]
  - Injection site pruritus [Recovered/Resolved]
  - Injection site induration [Recovered/Resolved]
  - Fatigue [Not Recovered/Not Resolved]
  - Injection site papule [Recovered/Resolved]
  - Pain [Not Recovered/Not Resolved]
  - Drug effect decreased [Unknown]
  - Drug ineffective [Not Recovered/Not Resolved]
  - Injection site erythema [Recovered/Resolved]

NARRATIVE: CASE EVENT DATE: 2014
